FAERS Safety Report 24601593 (Version 1)
Quarter: 2024Q4

REPORT INFORMATION
  Report Type: Other
  Country: CA (occurrence: CA)
  Receive Date: 20241111
  Receipt Date: 20241111
  Transmission Date: 20250114
  Serious: Yes (Hospitalization, Other)
  Sender: CELLTRION
  Company Number: CA-CELLTRION INC.-2024CA027586

PATIENT

DRUGS (2)
  1. RITUXIMAB [Suspect]
     Active Substance: RITUXIMAB
     Indication: Giant cell myocarditis
     Route: 065
  2. ALEMTUZUMAB [Concomitant]
     Active Substance: ALEMTUZUMAB
     Indication: Giant cell myocarditis
     Route: 065

REACTIONS (15)
  - Cardiogenic shock [Recovered/Resolved]
  - Encephalopathy [Recovered/Resolved]
  - Failure to thrive [Recovered/Resolved]
  - Lactic acidosis [Recovered/Resolved]
  - Myocardial fibrosis [Recovered/Resolved]
  - Performance status decreased [Recovered/Resolved]
  - Renal impairment [Recovered/Resolved]
  - Transplant dysfunction [Recovered/Resolved]
  - Cardiac failure chronic [Recovered/Resolved]
  - COVID-19 [Recovered/Resolved]
  - Hypotension [Recovered/Resolved]
  - Heart failure with reduced ejection fraction [Recovered/Resolved]
  - Drug effective for unapproved indication [Recovered/Resolved]
  - Off label use [Recovered/Resolved]
  - Intentional product use issue [Unknown]
